FAERS Safety Report 7953990-4 (Version None)
Quarter: 2011Q4

REPORT INFORMATION
  Report Type: 
  Country: None (occurrence: None)
  Receive Date: 20111202
  Receipt Date: 20111202
  Transmission Date: 20120403
  Serious: Yes (Hospitalization)
  Sender: FDA-Public Use
  Company Number: None

PATIENT
  Sex: Female
  Weight: 92.4 kg

DRUGS (1)
  1. NUVARING [Suspect]
     Route: 067

REACTIONS (2)
  - SINUSITIS [None]
  - INTRACRANIAL VENOUS SINUS THROMBOSIS [None]
